FAERS Safety Report 11259677 (Version 1)
Quarter: 2015Q3

REPORT INFORMATION
  Report Type: Spontaneous
  Country: US (occurrence: None)
  Receive Date: 20150709
  Receipt Date: 20150709
  Transmission Date: 20151125
  Serious: Yes (Hospitalization)
  Sender: FDA-Public Use
  Company Number: None

PATIENT
  Age: 61 Year
  Sex: Female

DRUGS (1)
  1. CIMETIDINE [Suspect]
     Active Substance: CIMETIDINE
     Dates: start: 20130820, end: 20130904

REACTIONS (5)
  - Jaundice [None]
  - Weight decreased [None]
  - Smooth muscle antibody positive [None]
  - Cholestasis [None]
  - Drug-induced liver injury [None]

NARRATIVE: CASE EVENT DATE: 20130825
